FAERS Safety Report 4814053-X (Version None)
Quarter: 2005Q4

REPORT INFORMATION
  Report Type: 
  Country: None (occurrence: None)
  Receive Date: 20051028
  Receipt Date: 20050718
  Transmission Date: 20060501
  Serious: No
  Sender: FDA-Public Use
  Company Number: US-GLAXOSMITHKLINE-A0566670A

PATIENT
  Age: 65 Year
  Sex: Male

DRUGS (4)
  1. SEREVENT [Suspect]
     Indication: ASTHMA
     Dosage: 1PAT PER DAY
     Route: 055
     Dates: start: 20050711
  2. ALBUTEROL [Concomitant]
  3. LORATADINE [Concomitant]
  4. ZEBETA [Concomitant]
     Route: 065

REACTIONS (1)
  - INCREASED VISCOSITY OF BRONCHIAL SECRETION [None]
